FAERS Safety Report 19249085 (Version 1)
Quarter: 2021Q2

REPORT INFORMATION
  Report Type: Spontaneous
  Country: US (occurrence: US)
  Receive Date: 20210512
  Receipt Date: 20210512
  Transmission Date: 20210717
  Serious: No
  Sender: FDA-Public Use
  Company Number: US-UCBSA-2020042100

PATIENT
  Sex: Female

DRUGS (2)
  1. HYDROCHLOROTHIAZIDE. [Concomitant]
     Active Substance: HYDROCHLOROTHIAZIDE
     Indication: OEDEMA
  2. CIMZIA [Suspect]
     Active Substance: CERTOLIZUMAB PEGOL
     Indication: PRODUCT USED FOR UNKNOWN INDICATION

REACTIONS (3)
  - Musculoskeletal discomfort [Unknown]
  - Nodule [Unknown]
  - Therapeutic response decreased [Unknown]
